FAERS Safety Report 7363456-0 (Version None)
Quarter: 2011Q1

REPORT INFORMATION
  Report Type: 
  Country: None (occurrence: None)
  Receive Date: 20110321
  Receipt Date: 20110308
  Transmission Date: 20110831
  Serious: Yes (Hospitalization, Other)
  Sender: FDA-Public Use
  Company Number: US-JNJFOC-20070100520

PATIENT
  Sex: Male
  Weight: 55.8 kg

DRUGS (8)
  1. INFLIXIMAB [Suspect]
     Indication: COLITIS ULCERATIVE
     Dosage: 1 INFUSION ON UNKNOWN DATE
     Route: 042
  2. METHYLPREDNISOLONE ACETATE [Concomitant]
     Route: 042
  3. AZATHIOPRINE [Concomitant]
  4. INFLIXIMAB [Suspect]
     Dosage: 1 INFUSION ON UNKNOWN DATE
     Route: 042
  5. INFLIXIMAB [Suspect]
     Indication: INFLAMMATORY BOWEL DISEASE
     Route: 042
  6. INFLIXIMAB [Suspect]
     Indication: COLITIS
     Route: 042
  7. INFLIXIMAB [Suspect]
     Route: 042
  8. INFLIXIMAB [Suspect]
     Dosage: 1 INFUSION ON UNKNOWN DATE
     Route: 042

REACTIONS (1)
  - COLITIS ULCERATIVE [None]
